FAERS Safety Report 13462339 (Version 1)
Quarter: 2017Q2

REPORT INFORMATION
  Report Type: Report from Study
  Country: DE (occurrence: DE)
  Receive Date: 20170420
  Receipt Date: 20170420
  Transmission Date: 20170830
  Serious: Yes (Other)
  Sender: FDA-Public Use
  Company Number: DE-ADIENNEP-2017AD000079

PATIENT
  Age: 60 Year
  Sex: Female
  Weight: 79 kg

DRUGS (4)
  1. MELPHALAN. [Suspect]
     Active Substance: MELPHALAN
     Indication: ANGIOIMMUNOBLASTIC T-CELL LYMPHOMA
     Dosage: 140 MG/M2 DAILY
     Route: 042
  2. CYTARABINE. [Suspect]
     Active Substance: CYTARABINE
     Indication: ANGIOIMMUNOBLASTIC T-CELL LYMPHOMA
     Dosage: 400 MG/M2 DAILY
     Route: 042
  3. THIOTEPA. [Suspect]
     Active Substance: THIOTEPA
     Indication: ANGIOIMMUNOBLASTIC T-CELL LYMPHOMA
     Dosage: 10 MG/KG DAILY
     Route: 042
     Dates: start: 20160929
  4. ETOPOSIDE. [Suspect]
     Active Substance: ETOPOSIDE
     Indication: ANGIOIMMUNOBLASTIC T-CELL LYMPHOMA
     Dosage: 2 DOSAGES 200 MG/M2 DAILY
     Route: 042

REACTIONS (6)
  - Diarrhoea [Recovered/Resolved]
  - Mucosal inflammation [Recovered/Resolved]
  - Leukopenia [Recovered/Resolved]
  - Neutropenia [Recovered/Resolved]
  - Abdominal pain [Recovered/Resolved]
  - Thrombocytopenia [Recovered/Resolved]

NARRATIVE: CASE EVENT DATE: 20161001
